FAERS Safety Report 7970514-6 (Version None)
Quarter: 2011Q4

REPORT INFORMATION
  Report Type: 
  Country: None (occurrence: None)
  Receive Date: 20111122
  Receipt Date: 20110822
  Transmission Date: 20120403
  Serious: No
  Sender: FDA-Public Use
  Company Number: PHEH2011US02160

PATIENT
  Age: 54 Year
  Sex: Male

DRUGS (14)
  1. ARICEPT [Concomitant]
  2. SIMVASTATIN [Concomitant]
  3. CELEXA [Concomitant]
  4. KLONOPIN [Concomitant]
  5. HYDROXYZINE PAMOATE [Suspect]
     Dosage: 50 MG, TID,
  6. LISINOPRIL [Concomitant]
  7. MORPHINE [Suspect]
     Dosage: 35 MG, BID
  8. PROSCAR [Concomitant]
  9. ATIVAN [Concomitant]
  10. GILENYA [Suspect]
     Dosage: 0.5MG, QD, ORAL
     Route: 048
  11. ZANTAC [Concomitant]
  12. ZYPREXA [Concomitant]
  13. FAMPRIDINE [Concomitant]
  14. METOPROLOL TARTRATE [Concomitant]

REACTIONS (3)
  - GASTROINTESTINAL MOTILITY DISORDER [None]
  - PRODUCTIVE COUGH [None]
  - GASTROINTESTINAL PAIN [None]
